FAERS Safety Report 8024629-7 (Version None)
Quarter: 2011Q4

REPORT INFORMATION
  Report Type: 
  Country: None (occurrence: None)
  Receive Date: 20111130
  Receipt Date: 20110808
  Transmission Date: 20120403
  Serious: Yes (Other)
  Sender: FDA-Public Use
  Company Number: PHEH2011US01277

PATIENT
  Age: 68 Year
  Sex: Female
  Weight: 99.8 kg

DRUGS (1)
  1. TEKTURNA [Suspect]
     Indication: HYPERTENSION
     Dosage: 150 MG, QD, ORAL
     Route: 048
     Dates: start: 20110806, end: 20110809

REACTIONS (4)
  - DIARRHOEA [None]
  - HYPERTENSION [None]
  - NAUSEA [None]
  - HEADACHE [None]
